FAERS Safety Report 6706365-X (Version None)
Quarter: 2010Q2

REPORT INFORMATION
  Report Type: 
  Country: None (occurrence: None)
  Receive Date: 20100503
  Receipt Date: 20100422
  Transmission Date: 20101027
  Serious: Yes (Hospitalization, Other)
  Sender: FDA-Public Use
  Company Number: US-ELI_LILLY_AND_COMPANY-US201004006260

PATIENT
  Sex: Female
  Weight: 126.98 kg

DRUGS (5)
  1. BYETTA [Suspect]
     Indication: TYPE 2 DIABETES MELLITUS
     Dosage: 5 UG, 2/D
  2. BYETTA [Suspect]
     Dosage: 10 UG, 2/D
  3. GLIPIZIDE [Concomitant]
     Dosage: 10 MG, DAILY (1/D)
  4. LANTUS [Concomitant]
     Dosage: 50 U, EACH MORNING
  5. METFORMIN [Concomitant]

REACTIONS (12)
  - BACK PAIN [None]
  - DYSPNOEA [None]
  - EYE HAEMORRHAGE [None]
  - FACE OEDEMA [None]
  - HYPERSENSITIVITY [None]
  - OFF LABEL USE [None]
  - PHARYNGEAL OEDEMA [None]
  - PRURITUS [None]
  - SWELLING [None]
  - URINARY TRACT INFECTION [None]
  - URTICARIA [None]
  - VISUAL IMPAIRMENT [None]
